FAERS Safety Report 21244114 (Version 2)
Quarter: 2022Q3

REPORT INFORMATION
  Report Type: Spontaneous
  Country: CZ (occurrence: CZ)
  Receive Date: 20220823
  Receipt Date: 20220906
  Transmission Date: 20221027
  Serious: Yes (Life-Threatening, Hospitalization)
  Sender: FDA-Public Use
  Company Number: CZ-TEVA-2022-CZ-2067062

PATIENT
  Age: 25 Year
  Sex: Female

DRUGS (22)
  1. MONTELUKAST [Suspect]
     Active Substance: MONTELUKAST SODIUM
     Indication: Status asthmaticus
     Dosage: 10 MILLIGRAM DAILY;
     Route: 048
  2. ALBUTEROL [Suspect]
     Active Substance: ALBUTEROL
     Indication: Status asthmaticus
     Route: 050
  3. FENOTEROL HYDROBROMIDE\IPRATROPIUM BROMIDE [Suspect]
     Active Substance: FENOTEROL HYDROBROMIDE\IPRATROPIUM BROMIDE
     Indication: Asthma
     Dosage: SEVERAL TIMES A DAY
     Route: 050
  4. FENOTEROL HYDROBROMIDE\IPRATROPIUM BROMIDE [Suspect]
     Active Substance: FENOTEROL HYDROBROMIDE\IPRATROPIUM BROMIDE
     Indication: Status asthmaticus
     Dosage: CONTINUOUS INHALATION
     Route: 050
  5. METHYLPREDNISOLONE [Suspect]
     Active Substance: METHYLPREDNISOLONE
     Indication: Status asthmaticus
     Route: 042
  6. METHYLPREDNISOLONE [Suspect]
     Active Substance: METHYLPREDNISOLONE
     Route: 042
  7. METHYLPREDNISOLONE [Suspect]
     Active Substance: METHYLPREDNISOLONE
     Dosage: FROM DAY 4
     Route: 042
  8. MAGNESIUM SULFATE [Suspect]
     Active Substance: MAGNESIUM SULFATE
     Indication: Status asthmaticus
     Route: 042
  9. MAGNESIUM SULFATE [Suspect]
     Active Substance: MAGNESIUM SULFATE
     Route: 042
  10. TERBUTALINE [Suspect]
     Active Substance: TERBUTALINE
     Indication: Status asthmaticus
     Dosage: 2 MILLIGRAM DAILY;
     Route: 042
  11. TERBUTALINE [Suspect]
     Active Substance: TERBUTALINE
     Route: 042
  12. THEOPHYLLINE [Suspect]
     Active Substance: THEOPHYLLINE
     Indication: Status asthmaticus
     Dosage: 720 MILLIGRAM DAILY;
     Route: 065
  13. THEOPHYLLINE [Suspect]
     Active Substance: THEOPHYLLINE
     Route: 065
  14. BISULEPIN [Suspect]
     Active Substance: BISULEPIN
     Indication: Status asthmaticus
     Dosage: 4 MILLIGRAM DAILY;
     Route: 042
  15. SEVOFLURANE [Suspect]
     Active Substance: SEVOFLURANE
     Indication: Status asthmaticus
     Route: 050
  16. OMALIZUMAB [Suspect]
     Active Substance: OMALIZUMAB
     Indication: Status asthmaticus
     Dosage: TWO DOSES
     Route: 058
  17. EPINEPHRINE [Concomitant]
     Active Substance: EPINEPHRINE
     Indication: Status asthmaticus
     Route: 042
  18. KETAMINE [Concomitant]
     Active Substance: KETAMINE
     Indication: Sedation
     Dosage: 150 MG/HOUR
     Route: 065
  19. SUFENTANIL [Concomitant]
     Active Substance: SUFENTANIL
     Indication: Sedation
     Dosage: 100 MG/HOUR
     Route: 065
  20. RIBAVIRIN [Concomitant]
     Active Substance: RIBAVIRIN
     Indication: Prophylaxis
     Route: 065
  21. CEFOTAXIME [Concomitant]
     Active Substance: CEFOTAXIME SODIUM
     Indication: Prophylaxis
     Route: 065
  22. CLARITHROMYCIN [Concomitant]
     Active Substance: CLARITHROMYCIN
     Indication: Prophylaxis
     Route: 065

REACTIONS (3)
  - Drug ineffective [Unknown]
  - Drug ineffective for unapproved indication [Unknown]
  - Off label use [Unknown]
